FAERS Safety Report 14020443 (Version 1)
Quarter: 2017Q3

REPORT INFORMATION
  Report Type: Spontaneous
  Country: US (occurrence: US)
  Receive Date: 20170928
  Receipt Date: 20170928
  Transmission Date: 20171128
  Serious: No
  Sender: FDA-Public Use
  Company Number: US-BAYER-2017-182176

PATIENT
  Sex: Male

DRUGS (2)
  1. MIRALAX [Suspect]
     Active Substance: POLYETHYLENE GLYCOL 3350
     Dosage: UNK
     Dates: start: 20170907, end: 20170913
  2. MIRALAX [Suspect]
     Active Substance: POLYETHYLENE GLYCOL 3350
     Dosage: UNK
     Route: 065
     Dates: start: 20170901, end: 20170905

REACTIONS (9)
  - Faeces soft [Unknown]
  - Constipation [Unknown]
  - Faecal volume increased [Unknown]
  - Faeces soft [Unknown]
  - Constipation [Unknown]
  - Faeces hard [Unknown]
  - Constipation [Unknown]
  - Abnormal faeces [Unknown]
  - Abnormal faeces [Unknown]

NARRATIVE: CASE EVENT DATE: 20170901
